FAERS Safety Report 8178759 (Version 7)
Quarter: 2013Q2

REPORT INFORMATION
  Report Type: Report from Study
  Country: US (occurrence: US)
  Receive Date: 20111013
  Receipt Date: 20130410
  Transmission Date: 20140414
  Serious: Yes (Hospitalization)
  Sender: FDA-Public Use
  Company Number: PHHO2011US01359

PATIENT
  Age: 22 Year
  Sex: Male
  Weight: 70.76 kg

DRUGS (8)
  1. CERTICAN [Suspect]
     Indication: RENAL TRANSPLANT
     Dosage: 0.75 MG, BID
     Route: 048
     Dates: start: 20101017, end: 20101020
  2. CERTICAN [Suspect]
     Dosage: 1.5 MG, BID
     Route: 048
     Dates: start: 20101021, end: 20101116
  3. CERTICAN [Suspect]
     Dosage: 2.25 MG, BID
     Route: 048
     Dates: start: 20101117, end: 20101123
  4. CERTICAN [Suspect]
     Dosage: 3 MG, BID
     Route: 048
     Dates: start: 20101124, end: 20110113
  5. CERTICAN [Suspect]
     Dosage: UNK
     Route: 048
     Dates: start: 20110119
  6. PREDNISONE [Suspect]
     Indication: RENAL TRANSPLANT
     Dosage: 5 MG, QD
     Route: 048
     Dates: start: 20101201
  7. TACROLIMUS [Suspect]
     Indication: RENAL TRANSPLANT
     Dosage: 2 MG, BID
     Route: 048
     Dates: start: 20101017
  8. TACROLIMUS [Suspect]
     Dosage: 3 MG, BID
     Dates: start: 20110117

REACTIONS (3)
  - Incisional hernia [Recovered/Resolved]
  - Internal hernia [Recovered/Resolved]
  - Small intestinal obstruction [Recovered/Resolved]
